FAERS Safety Report 20449928 (Version 1)
Quarter: 2022Q1

REPORT INFORMATION
  Report Type: Spontaneous
  Country: US (occurrence: US)
  Receive Date: 20220209
  Receipt Date: 20220209
  Transmission Date: 20220424
  Serious: No
  Sender: FDA-Public Use
  Company Number: US-PFIZER INC-2021580871

PATIENT
  Age: 81 Year
  Sex: Female

DRUGS (3)
  1. EUCRISA [Suspect]
     Active Substance: CRISABOROLE
     Indication: Dermatitis atopic
     Dosage: TWICE DAILY AFFECTED AREAS
  2. EUCRISA [Suspect]
     Active Substance: CRISABOROLE
     Indication: Dry skin
  3. EUCRISA [Suspect]
     Active Substance: CRISABOROLE
     Indication: Blepharitis

REACTIONS (6)
  - Condition aggravated [Unknown]
  - Application site hypersensitivity [Recovered/Resolved]
  - Application site irritation [Recovered/Resolved]
  - Urticaria [Recovered/Resolved]
  - Pruritus [Recovered/Resolved]
  - Contusion [Recovered/Resolved]
